FAERS Safety Report 8479222 (Version 6)
Quarter: 2015Q3

REPORT INFORMATION
  Report Type: Report from Study
  Country: US (occurrence: US)
  Receive Date: 20120328
  Receipt Date: 20150729
  Transmission Date: 20151125
  Serious: Yes (Hospitalization)
  Sender: FDA-Public Use
  Company Number: US-BIOGENIDEC-2012BI010144

PATIENT
  Age: 66 Year
  Sex: Female

DRUGS (3)
  1. AMPYRA [Concomitant]
     Active Substance: DALFAMPRIDINE
     Indication: MULTIPLE SCLEROSIS
     Dates: start: 20080523
  2. TYSABRI [Suspect]
     Active Substance: NATALIZUMAB
     Indication: MULTIPLE SCLEROSIS
     Route: 042
     Dates: start: 20080523, end: 20111025
  3. TYSABRI [Suspect]
     Active Substance: NATALIZUMAB
     Indication: MULTIPLE SCLEROSIS
     Route: 042

REACTIONS (11)
  - Inflammation [Unknown]
  - Muscle spasticity [Unknown]
  - Optic neuritis [Unknown]
  - Dislocation of vertebra [Recovered/Resolved]
  - Intervertebral disc operation [Recovered/Resolved]
  - Spinal osteoarthritis [Recovered/Resolved]
  - Multiple sclerosis [Not Recovered/Not Resolved]
  - Asthenia [Unknown]
  - Central nervous system lesion [Not Recovered/Not Resolved]
  - White blood cell count decreased [Unknown]
  - Dizziness [Unknown]

NARRATIVE: CASE EVENT DATE: 201110
